FAERS Safety Report 4356823-0 (Version None)
Quarter: 2004Q2

REPORT INFORMATION
  Report Type: 
  Country: None (occurrence: None)
  Receive Date: 20040507
  Receipt Date: 20040427
  Transmission Date: 20050107
  Serious: Yes (Death, Hospitalization)
  Sender: FDA-Public Use
  Company Number: 2001-07-0167

PATIENT
  Age: 34 Year
  Sex: Female

DRUGS (9)
  1. RIBAVIRIN [Suspect]
     Indication: HEPATITIS C
     Dosage: 800 MG QD ORAL
     Route: 048
     Dates: start: 20001101, end: 20010401
  2. INTRON A [Suspect]
     Indication: HEPATITIS C
     Dosage: 3 MU TIW SUBCUTANEOUS
     Route: 058
     Dates: start: 20001101, end: 20010401
  3. DDI (DIDEOXYINOSINE) [Concomitant]
     Indication: HIV INFECTION
     Dosage: 400 MG QD ORAL
     Route: 048
     Dates: start: 20010101
  4. DIDEHYDROTHYMIDINE (D4T) [Suspect]
     Indication: HIV INFECTION
     Dosage: 40 MG BID ORAL
     Route: 048
     Dates: start: 20010101
  5. ABACAVIR [Suspect]
     Indication: HIV INFECTION
     Dosage: 300 MG BID ORAL
     Route: 048
     Dates: start: 20010101
  6. AZITHROMYCIN [Concomitant]
  7. CO-TRIMOXAZOLE [Concomitant]
  8. GABAPENTIN [Concomitant]
  9. RIVOTRIL [Concomitant]

REACTIONS (5)
  - COMA [None]
  - CONDITION AGGRAVATED [None]
  - LACTIC ACIDOSIS [None]
  - NEUROLOGICAL SYMPTOM [None]
  - PANCREATITIS [None]
